FAERS Safety Report 5928797-X (Version None)
Quarter: 2008Q4

REPORT INFORMATION
  Report Type: 
  Country: None (occurrence: None)
  Receive Date: 20081020
  Receipt Date: 20081009
  Transmission Date: 20090506
  Serious: Yes (Other)
  Sender: FDA-Public Use
  Company Number: GXKR2008JP09678

PATIENT
  Age: 83 Year
  Sex: Female

DRUGS (8)
  1. FLUMAZENIL [Suspect]
     Dosage: 0.2 MG
  2. PROPOFOL [Suspect]
     Indication: ANAESTHESIA
     Dosage: 50 MG, ONCE/SINGLE; 60 MG, QH, INFUSION; 100 MG, QH, INFUSION
  3. VECURONIUM BROMIDE [Concomitant]
  4. FENTANYL-100 [Concomitant]
  5. SEVOFLURANE [Concomitant]
  6. MIDAZOLAM HCL [Concomitant]
  7. DEXMEDETOMIDINE (DEXMEDETOMIDINE) [Concomitant]
  8. NALOXONE [Concomitant]

REACTIONS (2)
  - DRUG INTERACTION [None]
  - SEDATION [None]
